FAERS Safety Report 19739060 (Version 1)
Quarter: 2021Q3

REPORT INFORMATION
  Report Type: Spontaneous
  Country: US (occurrence: US)
  Receive Date: 20210823
  Receipt Date: 20210823
  Transmission Date: 20211014
  Serious: Yes (Other)
  Sender: FDA-Public Use
  Company Number: None

PATIENT
  Age: 75 Year
  Sex: Female
  Weight: 74.7 kg

DRUGS (1)
  1. REGEN?COV [Suspect]
     Active Substance: CASIRIVIMAB\IMDEVIMAB
     Indication: COVID-19
     Dates: start: 20210819, end: 20210819

REACTIONS (6)
  - Ear pruritus [None]
  - Cough [None]
  - Dyspnoea [None]
  - Hypertension [None]
  - Nausea [None]
  - Sinus operation [None]

NARRATIVE: CASE EVENT DATE: 20210819
